FAERS Safety Report 14106889 (Version 1)
Quarter: 2017Q4

REPORT INFORMATION
  Report Type: Spontaneous
  Country: US (occurrence: None)
  Receive Date: 20171018
  Receipt Date: 20171018
  Transmission Date: 20180321
  Serious: Yes (Hospitalization)
  Sender: FDA-Public Use
  Company Number: None

PATIENT
  Age: 59 Year
  Sex: Male
  Weight: 85.73 kg

DRUGS (2)
  1. ISOVUE 300 [Suspect]
     Active Substance: IOPAMIDOL
     Indication: OESOPHAGEAL CARCINOMA
     Route: 042
     Dates: start: 20171017
  2. ISOVUE 300 [Suspect]
     Active Substance: IOPAMIDOL
     Indication: OESOPHAGEAL CARCINOMA
     Route: 042
     Dates: start: 20171005

REACTIONS (2)
  - Pruritus [None]
  - Urticaria [None]

NARRATIVE: CASE EVENT DATE: 20171017
